FAERS Safety Report 10470601 (Version 3)
Quarter: 2014Q4

REPORT INFORMATION
  Report Type: Spontaneous
  Country: US (occurrence: US)
  Receive Date: 20140923
  Receipt Date: 20141003
  Transmission Date: 20150528
  Serious: Yes (Other)
  Sender: FDA-Public Use
  Company Number: CHPA2014US012396

PATIENT
  Age: 65 Year
  Sex: Female

DRUGS (11)
  1. EXCEDRIN BACK AND BODY [Suspect]
     Active Substance: ACETAMINOPHEN\ASPIRIN
     Indication: ARTHRITIS
     Dosage: 1 DF, PRN
     Route: 048
  2. EXCEDRIN BACK AND BODY [Suspect]
     Active Substance: ACETAMINOPHEN\ASPIRIN
     Indication: OFF LABEL USE
  3. EXCEDRIN EXTRA STRENGTH [Suspect]
     Active Substance: ACETAMINOPHEN\ASPIRIN\CAFFEINE
     Dosage: 1 OR 2 CAPLETS, PRN
     Route: 048
  4. EXCEDRIN BACK AND BODY [Suspect]
     Active Substance: ACETAMINOPHEN\ASPIRIN
     Indication: BACK PAIN
  5. EXCEDRIN BACK AND BODY [Suspect]
     Active Substance: ACETAMINOPHEN\ASPIRIN
     Indication: FIBROMYALGIA
  6. EXCEDRIN TENSION HEADACHE [Suspect]
     Active Substance: ACETAMINOPHEN\CAFFEINE
     Indication: NECK PAIN
     Dosage: 1 OR 2 GELTABS, PRN
     Route: 048
  7. EXCEDRIN TENSION HEADACHE [Suspect]
     Active Substance: ACETAMINOPHEN\CAFFEINE
     Indication: NECK PAIN
     Dosage: 1 OR 2 CAPLETS, PRN
     Route: 048
  8. LYRICA [Concomitant]
     Active Substance: PREGABALIN
     Dosage: UNK
  9. EXCEDRIN MIGRAINE [Suspect]
     Active Substance: ACETAMINOPHEN\ASPIRIN\CAFFEINE
     Indication: MIGRAINE
     Dosage: 1 OR 2 CAPLETS, PRN
     Route: 048
  10. EXCEDRIN MIGRAINE [Suspect]
     Active Substance: ACETAMINOPHEN\ASPIRIN\CAFFEINE
     Indication: MIGRAINE
     Dosage: 1 OR 2 AS NEEDED
     Route: 048
  11. CYMBALTA [Concomitant]
     Active Substance: DULOXETINE HYDROCHLORIDE
     Dosage: UNK

REACTIONS (6)
  - Therapeutic response unexpected [Unknown]
  - Expired product administered [Unknown]
  - Condition aggravated [Not Recovered/Not Resolved]
  - Multiple sclerosis [Not Recovered/Not Resolved]
  - Drug ineffective [Unknown]
  - Underdose [Unknown]
